FAERS Safety Report 5630318-6 (Version None)
Quarter: 2008Q1

REPORT INFORMATION
  Report Type: 
  Country: None (occurrence: None)
  Receive Date: 20080213
  Receipt Date: 20080128
  Transmission Date: 20080703
  Serious: Yes (Hospitalization)
  Sender: FDA-Public Use
  Company Number: TRP_01042_2008

PATIENT
  Sex: Female
  Weight: 48.0813 kg

DRUGS (12)
  1. RIBASPHERE [Suspect]
     Indication: HEPATITIS C
     Dosage: (800 MG ORAL)
     Route: 048
     Dates: start: 20070913, end: 20080110
  2. PEG-INTRON [Suspect]
     Indication: HEPATITIS C
     Dosage: (80 UG 1X/WEEK SUBCUTANSOUS)
     Route: 058
     Dates: start: 20070913, end: 20080110
  3. FUROSEMIDE [Concomitant]
  4. OXYCODONE HCL [Concomitant]
  5. ACETAMINOPHEN [Concomitant]
  6. TOPIRAMATE [Concomitant]
  7. NADOLOL [Concomitant]
  8. MIGRANAL [Concomitant]
  9. CULTERELLE [Concomitant]
  10. BOOST [Concomitant]
  11. LOPERAMIDE HCL [Concomitant]
  12. LIDOCAINE [Concomitant]

REACTIONS (12)
  - ALPHA HAEMOLYTIC STREPTOCOCCAL INFECTION [None]
  - BLOOD GLUCOSE INCREASED [None]
  - BRAIN OEDEMA [None]
  - CAROTID ARTERY STENOSIS [None]
  - CEREBRAL ARTERY EMBOLISM [None]
  - CEREBRAL INFARCTION [None]
  - CEREBRAL THROMBOSIS [None]
  - CULTURE URINE POSITIVE [None]
  - DYSPHAGIA [None]
  - HEMIANOPIA HOMONYMOUS [None]
  - MITRAL VALVE INCOMPETENCE [None]
  - RED BLOOD CELL COUNT DECREASED [None]
